FAERS Safety Report 7102733-5 (Version None)
Quarter: 2010Q4

REPORT INFORMATION
  Report Type: 
  Country: None (occurrence: None)
  Receive Date: 20101115
  Receipt Date: 20101103
  Transmission Date: 20110411
  Serious: Yes (Hospitalization)
  Sender: FDA-Public Use
  Company Number: PHHY2010US72025

PATIENT
  Sex: Female
  Weight: 77.551 kg

DRUGS (7)
  1. FEMARA [Suspect]
     Indication: BREAST CANCER
     Dosage: 2.5 MG, QD
     Route: 048
     Dates: start: 20090901
  2. ALEVE (CAPLET) [Suspect]
     Dosage: 220 MG, UNK
     Route: 048
  3. PENTOXIFYLLINE [Concomitant]
     Dosage: 400 MG, BID
  4. COREG [Concomitant]
     Dosage: 12.5 MG, BID
  5. MIRALAX [Concomitant]
     Dosage: 17 G, UNK
     Route: 048
  6. ENALAPRIL MALEATE [Concomitant]
     Dosage: 5 MG, BID
  7. LASIX [Concomitant]
     Dosage: 40 MG, UNK

REACTIONS (1)
  - ULCER HAEMORRHAGE [None]
